FAERS Safety Report 6144951-9 (Version None)
Quarter: 2009Q2

REPORT INFORMATION
  Report Type: 
  Country: None (occurrence: None)
  Receive Date: 20090402
  Receipt Date: 20090402
  Transmission Date: 20091009
  Serious: No
  Sender: FDA-Public Use
  Company Number: None

PATIENT
  Age: 6 Month
  Sex: Male
  Weight: 5.7 kg

DRUGS (1)
  1. SYNAGIS [Suspect]
     Indication: PREMATURE BABY
     Dosage: 15MG/KG Q MONTH IM
     Route: 030
     Dates: start: 20090123, end: 20090224

REACTIONS (1)
  - RESPIRATORY SYNCYTIAL VIRUS INFECTION [None]
